FAERS Safety Report 12646246 (Version 1)
Quarter: 2016Q3

REPORT INFORMATION
  Report Type: Spontaneous
  Country: FR (occurrence: FR)
  Receive Date: 20160811
  Receipt Date: 20160811
  Transmission Date: 20161109
  Serious: Yes (Other)
  Sender: FDA-Public Use
  Company Number: FR-ROCHE-1497537

PATIENT
  Age: 76 Year
  Sex: Female

DRUGS (2)
  1. PIPOBROMAN [Interacting]
     Active Substance: PIPOBROMAN
     Indication: MALIGNANT MELANOMA
     Route: 065
     Dates: start: 2000
  2. ZELBORAF [Suspect]
     Active Substance: VEMURAFENIB
     Indication: METASTATIC MALIGNANT MELANOMA
     Route: 065
     Dates: start: 2013

REACTIONS (2)
  - Drug interaction [Unknown]
  - Squamous cell carcinoma [Unknown]
